FAERS Safety Report 5392727-2 (Version None)
Quarter: 2007Q3

REPORT INFORMATION
  Report Type: 
  Country: None (occurrence: None)
  Receive Date: 20070720
  Receipt Date: 20070708
  Transmission Date: 20080115
  Serious: Yes (Other)
  Sender: FDA-Public Use
  Company Number: US-PFIZER INC-2007055781

PATIENT
  Sex: Female
  Weight: 70.3 kg

DRUGS (5)
  1. LYRICA [Suspect]
     Indication: NEURALGIA
  2. ULTRAM [Concomitant]
  3. ARTHROTEC [Concomitant]
  4. ALLEGRA [Concomitant]
  5. LOTREL [Concomitant]
     Indication: BLOOD PRESSURE

REACTIONS (6)
  - ASTHENIA [None]
  - BEDRIDDEN [None]
  - FATIGUE [None]
  - GAIT DISTURBANCE [None]
  - MUSCLE SPASMS [None]
  - MUSCULAR WEAKNESS [None]
